FAERS Safety Report 17204350 (Version 3)
Quarter: 2020Q1

REPORT INFORMATION
  Report Type: Report from Study
  Country: US (occurrence: US)
  Receive Date: 20191226
  Receipt Date: 20200211
  Transmission Date: 20200409
  Serious: Yes (Other)
  Sender: FDA-Public Use
  Company Number: US-ACTELION-A-NJ2019-199563

PATIENT
  Age: 48 Year
  Sex: Female

DRUGS (3)
  1. OPSUMIT [Suspect]
     Active Substance: MACITENTAN
     Indication: PULMONARY ARTERIAL HYPERTENSION
     Dosage: 10 MG, QD
     Route: 048
     Dates: start: 20191208, end: 20200108
  2. XARELTO [Concomitant]
     Active Substance: RIVAROXABAN
  3. TADALAFIL. [Suspect]
     Active Substance: TADALAFIL
     Indication: PRODUCT USED FOR UNKNOWN INDICATION
     Dosage: 62.5 UNK
     Route: 048
     Dates: start: 201911, end: 20200102

REACTIONS (10)
  - Anxiety [Unknown]
  - Amenorrhoea [Unknown]
  - Erythema [Unknown]
  - Product dose omission [Unknown]
  - Pruritus [Recovering/Resolving]
  - Atrial fibrillation [Unknown]
  - Scab [Unknown]
  - Dyspnoea [Unknown]
  - Hot flush [Recovered/Resolved]
  - Ovarian neoplasm [Unknown]

NARRATIVE: CASE EVENT DATE: 2019
